FAERS Safety Report 4306841-3 (Version None)
Quarter: 2004Q1

REPORT INFORMATION
  Report Type: 
  Country: None (occurrence: None)
  Receive Date: 20040225
  Receipt Date: 20021009
  Transmission Date: 20041129
  Serious: Yes (Death, Hospitalization)
  Sender: FDA-Public Use
  Company Number: 2002IC000288

PATIENT
  Age: 74 Year
  Sex: Male

DRUGS (8)
  1. FLUOROURACIL [Suspect]
     Indication: COLON CANCER
     Dosage: 500 MG INTRAVENOUS
     Route: 042
     Dates: start: 20020806, end: 20020809
  2. FLUOROURACIL [Suspect]
     Indication: COLON CANCER
     Dosage: 500 MG INTRAVENOUS
     Route: 042
     Dates: start: 20020813, end: 20020816
  3. FLUOROURACIL [Suspect]
     Indication: COLON CANCER
     Dosage: 500 MG INTRAVENOUS
     Route: 042
     Dates: start: 20020820, end: 20020823
  4. ISOVORIN [Suspect]
     Indication: COLON CANCER
     Dosage: 250 MG, INTRAVENOUS
     Route: 042
     Dates: start: 20020806, end: 20020809
  5. ISOVORIN [Suspect]
     Indication: COLON CANCER
     Dosage: 250 MG, INTRAVENOUS
     Route: 042
     Dates: start: 20020813, end: 20020816
  6. ISOVORIN [Suspect]
     Indication: COLON CANCER
     Dosage: 250 MG, INTRAVENOUS
     Route: 042
     Dates: start: 20020820, end: 20020823
  7. SEROTONE [Concomitant]
  8. SAXIZON [Concomitant]

REACTIONS (4)
  - BONE MARROW DEPRESSION [None]
  - DEHYDRATION [None]
  - DIARRHOEA [None]
  - DISSEMINATED INTRAVASCULAR COAGULATION [None]
